FAERS Safety Report 7442423-2 (Version None)
Quarter: 2011Q2

REPORT INFORMATION
  Report Type: 
  Country: None (occurrence: None)
  Receive Date: 20110425
  Receipt Date: 20110425
  Transmission Date: 20111010
  Serious: Yes (Other)
  Sender: FDA-Public Use
  Company Number: None

PATIENT
  Age: 59 Year
  Sex: Male
  Weight: 71.6683 kg

DRUGS (1)
  1. OMEPRAZOLE [Suspect]
     Indication: ABDOMINAL PAIN UPPER
     Dosage: 40 MG -2 CAPSULES OF 20 MG- ONCE DAILY PO
     Route: 048
     Dates: start: 20110417, end: 20110423

REACTIONS (2)
  - GAIT DISTURBANCE [None]
  - ARTHRALGIA [None]
